FAERS Safety Report 18933044 (Version 1)
Quarter: 2021Q1

REPORT INFORMATION
  Report Type: Spontaneous
  Country: US (occurrence: US)
  Receive Date: 20210224
  Receipt Date: 20210224
  Transmission Date: 20210420
  Serious: Yes (Other)
  Sender: FDA-Public Use
  Company Number: None

PATIENT
  Age: 79 Year
  Sex: Male
  Weight: 92.5 kg

DRUGS (1)
  1. RITUXIMAB?PVVR [Suspect]
     Active Substance: RITUXIMAB-PVVR
     Indication: LYMPHOPLASIA
     Dates: start: 20201203, end: 20201203

REACTIONS (2)
  - Abdominal discomfort [None]
  - Rhinorrhoea [None]

NARRATIVE: CASE EVENT DATE: 20201203
